FAERS Safety Report 24093880 (Version 1)
Quarter: 2024Q3

REPORT INFORMATION
  Report Type: Report from Study
  Country: US (occurrence: US)
  Receive Date: 20240716
  Receipt Date: 20240716
  Transmission Date: 20241017
  Serious: Yes (Other)
  Sender: ABBVIE
  Company Number: US-ABBVIE-5836716

PATIENT
  Age: 62 Year
  Sex: Male

DRUGS (1)
  1. RINVOQ [Suspect]
     Active Substance: UPADACITINIB
     Indication: Dermatitis atopic
     Route: 048
     Dates: start: 20221207, end: 20240617

REACTIONS (3)
  - Visual impairment [Not Recovered/Not Resolved]
  - Dysuria [Recovering/Resolving]
  - Urinary tract discomfort [Recovering/Resolving]

NARRATIVE: CASE EVENT DATE: 20240514
